FAERS Safety Report 9331539 (Version 2)
Quarter: 2013Q2

REPORT INFORMATION
  Report Type: Spontaneous
  Country: US (occurrence: US)
  Receive Date: 20130605
  Receipt Date: 20130617
  Transmission Date: 20140414
  Serious: No
  Sender: FDA-Public Use
  Company Number: US-PFIZER INC-2013166243

PATIENT
  Age: 57 Year
  Sex: Female
  Weight: 61 kg

DRUGS (3)
  1. LEVOXYL [Suspect]
     Indication: HYPOTHYROIDISM
     Dosage: 150 UG, 1X/DAY
     Route: 048
     Dates: start: 2008, end: 2012
  2. LEVOXYL [Suspect]
     Dosage: 125 UG, 1X/DAY
     Route: 048
     Dates: start: 2012, end: 20130523
  3. NEXIUM [Concomitant]
     Indication: GASTROOESOPHAGEAL REFLUX DISEASE
     Dosage: UNK

REACTIONS (4)
  - Incorrect dose administered [Unknown]
  - Palpitations [Recovering/Resolving]
  - Weight decreased [Unknown]
  - Middle insomnia [Recovering/Resolving]
